FAERS Safety Report 9350820 (Version 1)
Quarter: 2013Q2

REPORT INFORMATION
  Report Type: Spontaneous
  Country: FR (occurrence: FR)
  Receive Date: 20130617
  Receipt Date: 20130617
  Transmission Date: 20140414
  Serious: Yes (Other)
  Sender: FDA-Public Use
  Company Number: PHHY2013FR060321

PATIENT
  Age: 83 Year
  Sex: Female

DRUGS (2)
  1. RASILEZ [Suspect]
     Indication: HYPERTENSION
     Dosage: 300 MG, QD
     Route: 048
     Dates: start: 2003
  2. ANTIHYPERTENSIVE DRUGS [Concomitant]

REACTIONS (4)
  - Nephropathy [Unknown]
  - Proteinuria [Unknown]
  - Blood pressure systolic increased [Unknown]
  - Drug ineffective [Unknown]
